FAERS Safety Report 4596209-7 (Version None)
Quarter: 2005Q1

REPORT INFORMATION
  Report Type: 
  Country: None (occurrence: None)
  Receive Date: 20050228
  Receipt Date: 20050228
  Transmission Date: 20050727
  Serious: Yes (Other)
  Sender: FDA-Public Use
  Company Number: None

PATIENT
  Age: 49 Year
  Sex: Male
  Weight: 78.9259 kg

DRUGS (1)
  1. GABITRIL [Suspect]
     Indication: GENERALISED ANXIETY DISORDER
     Dosage: 8 MG PO BID
     Route: 048

REACTIONS (5)
  - CONFUSIONAL STATE [None]
  - DISTURBANCE IN ATTENTION [None]
  - MEDICATION ERROR [None]
  - RESTLESSNESS [None]
  - TREATMENT NONCOMPLIANCE [None]
